FAERS Safety Report 15781826 (Version 1)
Quarter: 2019Q1

REPORT INFORMATION
  Report Type: Spontaneous
  Country: US (occurrence: US)
  Receive Date: 20190102
  Receipt Date: 20190102
  Transmission Date: 20190417
  Serious: No
  Sender: FDA-Public Use
  Company Number: US-TEVA-2018-US-984551

PATIENT
  Sex: Female

DRUGS (1)
  1. MICONAZOLE 3 COMBINATION PACK [Suspect]
     Active Substance: MICONAZOLE NITRATE
     Indication: FUNGAL INFECTION
     Dosage: 200 MG / 2 %
     Dates: start: 201811

REACTIONS (3)
  - Pruritus [Unknown]
  - Drug ineffective [Unknown]
  - Pain of skin [Unknown]

NARRATIVE: CASE EVENT DATE: 201811
